FAERS Safety Report 13793755 (Version 1)
Quarter: 2017Q3

REPORT INFORMATION
  Report Type: Spontaneous
  Country: US (occurrence: US)
  Receive Date: 20170726
  Receipt Date: 20170726
  Transmission Date: 20171127
  Serious: Yes (Other)
  Sender: FDA-Public Use
  Company Number: US-009507513-1707USA010411

PATIENT

DRUGS (2)
  1. DEXAMETHASONE. [Suspect]
     Active Substance: DEXAMETHASONE
     Dosage: UNK
     Route: 042
     Dates: end: 20170725
  2. EMEND [Suspect]
     Active Substance: APREPITANT
     Dosage: 150 MG, UNK
     Route: 042
     Dates: end: 20170725

REACTIONS (1)
  - Anaphylactoid reaction [Unknown]

NARRATIVE: CASE EVENT DATE: 20170725
